FAERS Safety Report 23230884 (Version 1)
Quarter: 2023Q4

REPORT INFORMATION
  Report Type: Spontaneous
  Country: CN (occurrence: CN)
  Receive Date: 20231127
  Receipt Date: 20231127
  Transmission Date: 20240110
  Serious: Yes (Other)
  Sender: FDA-Public Use
  Company Number: CN-009507513-2311CHN008289

PATIENT
  Age: 77 Year
  Sex: Male

DRUGS (1)
  1. INVANZ [Suspect]
     Active Substance: ERTAPENEM SODIUM
     Indication: Gallbladder disorder
     Dosage: 1 G, QD
     Route: 041
     Dates: start: 20231114, end: 20231117

REACTIONS (4)
  - Dementia [Recovering/Resolving]
  - Sleep talking [Unknown]
  - Memory impairment [Unknown]
  - Poor quality sleep [Recovering/Resolving]

NARRATIVE: CASE EVENT DATE: 20231116
